FAERS Safety Report 8859224 (Version 2)
Quarter: 2012Q4

REPORT INFORMATION
  Report Type: Spontaneous
  Country: HU (occurrence: None)
  Receive Date: 20121023
  Receipt Date: 20121106
  Transmission Date: 20130627
  Serious: Yes (Other)
  Sender: FDA-Public Use
  Company Number: HRA-CDB20120275

PATIENT
  Age: 28 Year

DRUGS (1)
  1. ELLAONE [Suspect]
     Indication: POST COITAL CONTRACEPTION
     Route: 048
     Dates: start: 2012, end: 2012

REACTIONS (2)
  - Pregnancy after post coital contraception [None]
  - Maternal exposure before pregnancy [None]
